FAERS Safety Report 5687480-9 (Version None)
Quarter: 2008Q1

REPORT INFORMATION
  Report Type: 
  Country: None (occurrence: None)
  Receive Date: 20080328
  Receipt Date: 20070110
  Transmission Date: 20080703
  Serious: Yes (Hospitalization)
  Sender: FDA-Public Use
  Company Number: US-BAYER-US-2006-037841

PATIENT
  Age: 36 Year
  Sex: Female
  Weight: 75 kg

DRUGS (2)
  1. MIRENA [Suspect]
     Route: 015
     Dates: start: 20030710, end: 20061106
  2. VITAMINS [Concomitant]

REACTIONS (2)
  - ADHESION [None]
  - ECTOPIC PREGNANCY [None]
